FAERS Safety Report 7703385-3 (Version None)
Quarter: 2011Q3

REPORT INFORMATION
  Report Type: 
  Country: None (occurrence: None)
  Receive Date: 20110823
  Receipt Date: 20110809
  Transmission Date: 20111222
  Serious: No
  Sender: FDA-Public Use
  Company Number: US-B.I. PHARMACEUTICALS,INC./RIDGEFIELD-2011-BP-16065BP

PATIENT
  Age: 63 Year
  Sex: Male
  Weight: 74.84 kg

DRUGS (4)
  1. PRADAXA [Suspect]
     Indication: CARDIAC ABLATION
  2. PRAVASTATIN [Concomitant]
     Indication: BLOOD CHOLESTEROL INCREASED
     Dosage: 10 MG
     Route: 048
     Dates: start: 20110110
  3. PRADAXA [Suspect]
     Indication: ATRIAL FIBRILLATION
     Dosage: 300 MG
     Route: 048
     Dates: start: 20110331
  4. ASPIRIN [Concomitant]
     Dates: start: 20110110

REACTIONS (3)
  - MYALGIA [None]
  - LACRIMATION INCREASED [None]
  - EYE PRURITUS [None]
